FAERS Safety Report 13591304 (Version 1)
Quarter: 2017Q2

REPORT INFORMATION
  Report Type: Spontaneous
  Country: US (occurrence: US)
  Receive Date: 20170530
  Receipt Date: 20170530
  Transmission Date: 20170830
  Serious: No
  Sender: FDA-Public Use
  Company Number: None

PATIENT
  Age: 63 Year
  Sex: Female

DRUGS (1)
  1. TALTZ [Suspect]
     Active Substance: IXEKIZUMAB
     Indication: PSORIASIS
     Dosage: 80MG EVERY 2 WEEKS FROM WEEK 2 THROUGH 10 SUBCUTANEOUSLY
     Route: 058
     Dates: start: 20170302

REACTIONS (2)
  - Treatment noncompliance [None]
  - Bronchitis [None]

NARRATIVE: CASE EVENT DATE: 20170425
